FAERS Safety Report 8208571-4 (Version None)
Quarter: 2012Q1

REPORT INFORMATION
  Report Type: 
  Country: None (occurrence: None)
  Receive Date: 20120314
  Receipt Date: 20120306
  Transmission Date: 20120608
  Serious: Yes (Disabling)
  Sender: FDA-Public Use
  Company Number: US-GLAXOSMITHKLINE-A0969550A

PATIENT
  Age: 52 Year
  Sex: Female
  Weight: 61.4 kg

DRUGS (3)
  1. ALPRAZOLAM [Suspect]
     Indication: PANIC ATTACK
     Dosage: 2MG FOUR TIMES PER DAY
     Route: 065
  2. PAXIL [Suspect]
     Indication: DEPRESSION
     Dosage: 150MG PER DAY
     Route: 065
     Dates: start: 20020101, end: 20020101
  3. NO CONCURRENT MEDICATIONS [Concomitant]

REACTIONS (3)
  - MUSCLE DISORDER [None]
  - ABASIA [None]
  - FALL [None]
